FAERS Safety Report 8310780-0 (Version None)
Quarter: 2012Q2

REPORT INFORMATION
  Report Type: 
  Country: None (occurrence: None)
  Receive Date: 20120425
  Receipt Date: 20120424
  Transmission Date: 20120825
  Serious: Yes (Hospitalization)
  Sender: FDA-Public Use
  Company Number: TR-ABBOTT-12P-161-0928568-00

PATIENT
  Sex: Male
  Weight: 77 kg

DRUGS (2)
  1. RENAGEL [Concomitant]
     Indication: BLOOD PHOSPHORUS ABNORMAL
     Dosage: 3X2
     Route: 048
     Dates: start: 19940101, end: 20120331
  2. ZEMPLAR [Suspect]
     Indication: HYPERPARATHYROIDISM
     Route: 042
     Dates: start: 20111001, end: 20120331

REACTIONS (1)
  - RENAL TRANSPLANT [None]
